FAERS Safety Report 4816229-4 (Version None)
Quarter: 2005Q4

REPORT INFORMATION
  Report Type: 
  Country: None (occurrence: None)
  Receive Date: 20051026
  Receipt Date: 20051010
  Transmission Date: 20060501
  Serious: Yes (Hospitalization)
  Sender: FDA-Public Use
  Company Number: EWC050946085

PATIENT
  Sex: Female

DRUGS (4)
  1. HUMULIN R [Suspect]
     Indication: DIABETES MELLITUS
  2. HUMULIN N [Suspect]
     Indication: DIABETES MELLITUS
  3. AVANDIA [Concomitant]
  4. DIAMICRON (GLICLAZIDE) [Concomitant]

REACTIONS (3)
  - ERYTHEMA MULTIFORME [None]
  - PYREXIA [None]
  - RASH GENERALISED [None]
